FAERS Safety Report 7573587-8 (Version None)
Quarter: 2011Q2

REPORT INFORMATION
  Report Type: 
  Country: None (occurrence: None)
  Receive Date: 20110627
  Receipt Date: 20110617
  Transmission Date: 20111010
  Serious: Yes (Other)
  Sender: FDA-Public Use
  Company Number: GB-PFIZER INC-2011135105

PATIENT
  Age: 64 Year
  Sex: Male
  Weight: 76.2 kg

DRUGS (4)
  1. VARENICLINE TARTRATE [Suspect]
     Indication: SMOKING CESSATION THERAPY
     Dosage: 0.5 MG, UNK
     Route: 048
     Dates: start: 20110527, end: 20110528
  2. ACETAMINOPHEN [Concomitant]
     Route: 048
  3. RANITIDINE [Concomitant]
     Indication: DYSPEPSIA
     Dosage: 1 DF, AS NEEDED
     Route: 048
  4. HYDROXYCARBAMIDE [Concomitant]
     Indication: POLYCYTHAEMIA
     Route: 048

REACTIONS (5)
  - CONFUSIONAL STATE [None]
  - FEELING COLD [None]
  - DIARRHOEA [None]
  - ABNORMAL DREAMS [None]
  - TREMOR [None]
